FAERS Safety Report 19481136 (Version 1)
Quarter: 2021Q3

REPORT INFORMATION
  Report Type: Spontaneous
  Country: US (occurrence: US)
  Receive Date: 20210701
  Receipt Date: 20210701
  Transmission Date: 20211014
  Serious: Yes (Hospitalization)
  Sender: FDA-Public Use
  Company Number: US-AUROBINDO-AUR-APL-2021-027286

PATIENT
  Age: 53 Year
  Sex: Female

DRUGS (13)
  1. CITALOPRAM [Concomitant]
     Active Substance: CITALOPRAM HYDROBROMIDE
     Indication: MAJOR DEPRESSION
     Dosage: UNK
     Route: 065
  2. ESCITALOPRAM [Concomitant]
     Active Substance: ESCITALOPRAM OXALATE
     Indication: MAJOR DEPRESSION
     Dosage: UNK
     Route: 065
  3. FLUVOXAMINE [Concomitant]
     Active Substance: FLUVOXAMINE
     Indication: MAJOR DEPRESSION
     Dosage: UNK
     Route: 065
  4. OLANZAPINE. [Concomitant]
     Active Substance: OLANZAPINE
     Indication: MAJOR DEPRESSION
     Dosage: UNK
     Route: 065
  5. QUETIAPINE. [Suspect]
     Active Substance: QUETIAPINE
     Indication: MAJOR DEPRESSION
     Dosage: 300 MILLIGRAM, AT BED TIME
     Route: 065
  6. TOPIRAMATE. [Concomitant]
     Active Substance: TOPIRAMATE
     Indication: EPILEPSY
     Dosage: 200 MILLIGRAM, QHS
     Route: 065
  7. PAROXETINE. [Concomitant]
     Active Substance: PAROXETINE
     Indication: MAJOR DEPRESSION
     Dosage: UNK
     Route: 065
  8. LITHIUM. [Suspect]
     Active Substance: LITHIUM
     Indication: MAJOR DEPRESSION
     Dosage: 300 MILLIGRAM, 3 TIMES A DAY
     Route: 065
  9. IMIPRAMINE [Concomitant]
     Active Substance: IMIPRAMINE
     Indication: MAJOR DEPRESSION
     Dosage: UNK
     Route: 065
  10. NEFAZODONE [Concomitant]
     Active Substance: NEFAZODONE
     Indication: MAJOR DEPRESSION
     Dosage: UNK
     Route: 065
  11. ARIPIPRAZOLE. [Concomitant]
     Active Substance: ARIPIPRAZOLE
     Indication: MAJOR DEPRESSION
     Dosage: UNK
     Route: 065
  12. DULOXETINE. [Suspect]
     Active Substance: DULOXETINE
     Indication: MAJOR DEPRESSION
     Dosage: 90 MILLIGRAM, ONCE A DAY
     Route: 065
  13. VENLAFAXINE [Concomitant]
     Active Substance: VENLAFAXINE HYDROCHLORIDE
     Indication: MAJOR DEPRESSION
     Dosage: UNK
     Route: 065

REACTIONS (1)
  - Treatment failure [Unknown]
